FAERS Safety Report 24562242 (Version 1)
Quarter: 2024Q4

REPORT INFORMATION
  Report Type: Spontaneous
  Country: CA (occurrence: CA)
  Receive Date: 20241029
  Receipt Date: 20241029
  Transmission Date: 20250115
  Serious: Yes (Other)
  Sender: TEVA
  Company Number: CA-TEVA-VS-3257526

PATIENT
  Age: 76 Year
  Sex: Female
  Weight: 72 kg

DRUGS (2)
  1. IMATINIB [Suspect]
     Active Substance: IMATINIB
     Indication: Lymphocytic leukaemia
     Route: 048
  2. IMATINIB [Suspect]
     Active Substance: IMATINIB
     Indication: Lymphocytic leukaemia
     Route: 048

REACTIONS (2)
  - Skin infection [Recovered/Resolved]
  - Similar reaction on previous exposure to drug [Recovered/Resolved]
